FAERS Safety Report 7495611-3 (Version None)
Quarter: 2011Q2

REPORT INFORMATION
  Report Type: 
  Country: None (occurrence: None)
  Receive Date: 20110523
  Receipt Date: 20110513
  Transmission Date: 20111010
  Serious: Yes (Other)
  Sender: FDA-Public Use
  Company Number: JP-ASTELLAS-2011JP003238

PATIENT
  Age: 77 Year
  Sex: Female

DRUGS (2)
  1. VESICARE [Suspect]
     Dosage: UNK
     Route: 048
  2. VESICARE [Suspect]
     Dosage: UNK
     Route: 048

REACTIONS (1)
  - INTESTINAL OBSTRUCTION [None]
